FAERS Safety Report 11615588 (Version 1)
Quarter: 2015Q4

REPORT INFORMATION
  Report Type: Spontaneous
  Country: IT (occurrence: IT)
  Receive Date: 20151009
  Receipt Date: 20151009
  Transmission Date: 20160304
  Serious: Yes (Other)
  Sender: FDA-Public Use
  Company Number: PHHY2015IT119842

PATIENT
  Age: 68 Year
  Sex: Female

DRUGS (2)
  1. CLODY [Suspect]
     Active Substance: CLODRONATE DISODIUM
     Indication: PRODUCT USED FOR UNKNOWN INDICATION
     Dosage: 3.3 MG, CYCLIC
     Route: 030
     Dates: start: 20141101, end: 20141201
  2. ZOMETA [Suspect]
     Active Substance: ZOLEDRONIC ACID
     Indication: PLASMA CELL MYELOMA
     Dosage: 4 MG, QMO
     Route: 065
     Dates: start: 20150201, end: 20150401

REACTIONS (3)
  - Osteonecrosis of jaw [Recovered/Resolved]
  - Mucosal hyperaemia [Unknown]
  - Exposed bone in jaw [Unknown]

NARRATIVE: CASE EVENT DATE: 20150402
